FAERS Safety Report 14743887 (Version 8)
Quarter: 2020Q2

REPORT INFORMATION
  Report Type: Spontaneous
  Country: US (occurrence: US)
  Receive Date: 20180410
  Receipt Date: 20200504
  Transmission Date: 20200713
  Serious: No
  Sender: FDA-Public Use
  Company Number: US-BRISTOL-MYERS SQUIBB COMPANY-BMS-2018-033202

PATIENT
  Age: 56 Year
  Sex: Female

DRUGS (1)
  1. ORENCIA [Suspect]
     Active Substance: ABATACEPT
     Indication: RHEUMATOID ARTHRITIS
     Dosage: 125 MG, QWK
     Route: 058
     Dates: start: 20180501

REACTIONS (7)
  - Administration site bruise [Unknown]
  - Chronic sinusitis [Recovered/Resolved]
  - Influenza C virus test positive [Unknown]
  - Bronchitis [Unknown]
  - Sinusitis [Unknown]
  - Influenza A virus test positive [Unknown]
  - Malaise [Unknown]

NARRATIVE: CASE EVENT DATE: 20180601
